FAERS Safety Report 24612563 (Version 2)
Quarter: 2024Q4

REPORT INFORMATION
  Report Type: Spontaneous
  Country: US (occurrence: US)
  Receive Date: 20241113
  Receipt Date: 20241113
  Transmission Date: 20250115
  Serious: No
  Sender: MERCK
  Company Number: US-009507513-2411USA000574

PATIENT
  Age: 16 Year
  Sex: Male

DRUGS (1)
  1. WELIREG [Suspect]
     Active Substance: BELZUTIFAN
     Indication: Haemangioblastoma
     Dosage: STARTING AT 80 MG (FLUCTUATED DOSE 60 - 80 MG), QD
     Route: 048

REACTIONS (4)
  - Fatigue [Recovering/Resolving]
  - Dizziness [Recovering/Resolving]
  - Headache [Recovering/Resolving]
  - Off label use [Unknown]
